FAERS Safety Report 19269610 (Version 1)
Quarter: 2021Q2

REPORT INFORMATION
  Report Type: Spontaneous
  Country: PT (occurrence: PT)
  Receive Date: 20210518
  Receipt Date: 20210518
  Transmission Date: 20210717
  Serious: Yes (Other)
  Sender: FDA-Public Use
  Company Number: NVSC2021PT101750

PATIENT
  Sex: Male

DRUGS (2)
  1. VALSARTAN. [Concomitant]
     Active Substance: VALSARTAN
     Indication: PRODUCT USED FOR UNKNOWN INDICATION
     Route: 065
  2. PAZOPANIB [Suspect]
     Active Substance: PAZOPANIB
     Indication: RENAL CELL CARCINOMA
     Dosage: 800 MG, QD (400MG 12/12H)
     Route: 048
     Dates: start: 20190225, end: 20200623

REACTIONS (2)
  - Thyroid disorder [Recovered/Resolved]
  - Hepatic failure [Recovered/Resolved]

NARRATIVE: CASE EVENT DATE: 20190309
